FAERS Safety Report 11783822 (Version 1)
Quarter: 2015Q4

REPORT INFORMATION
  Report Type: Report from Study
  Country: JP (occurrence: JP)
  Receive Date: 20151127
  Receipt Date: 20151127
  Transmission Date: 20160305
  Serious: Yes (Other)
  Sender: FDA-Public Use
  Company Number: JP-ASTRAZENECA-2014SE53272

PATIENT
  Age: 19294 Day
  Sex: Female
  Weight: 82 kg

DRUGS (14)
  1. QUETIAPINE FUMARATE. [Suspect]
     Active Substance: QUETIAPINE FUMARATE
     Indication: BIPOLAR DISORDER
     Dosage: PERIOD I (RUN-IN OBSERVATION PERIOD)
     Route: 048
     Dates: start: 20130726
  2. LOTRIGA [Concomitant]
     Active Substance: OMEGA-3-ACID ETHYL ESTERS
     Dates: start: 20140418
  3. LOXOPROFEN SODIUM [Concomitant]
     Active Substance: LOXOPROFEN SODIUM
  4. QUETIAPINE FUMARATE. [Suspect]
     Active Substance: QUETIAPINE FUMARATE
     Indication: BIPOLAR DISORDER
     Dosage: OPEN LABEL STUDY DRUG OF TREATMENT PERIOD II (CONTINUOUS ADMINISTRATION PERIOD)
     Route: 048
     Dates: start: 20131105, end: 20131125
  5. MUCOSTA [Concomitant]
     Active Substance: REBAMIPIDE
     Dates: start: 20131211
  6. QUETIAPINE FUMARATE. [Suspect]
     Active Substance: QUETIAPINE FUMARATE
     Indication: BIPOLAR DISORDER
     Dosage: SINGLE-BLINDED STUDY DRUG TREATMENT
     Route: 048
     Dates: start: 20131031
  7. QUETIAPINE FUMARATE. [Suspect]
     Active Substance: QUETIAPINE FUMARATE
     Indication: BIPOLAR DISORDER
     Dosage: DOUBLE-BLINDED STUDY DRUG OF TREATMENT PERIOD I
     Route: 048
     Dates: start: 20130808, end: 20131001
  8. QUETIAPINE FUMARATE. [Suspect]
     Active Substance: QUETIAPINE FUMARATE
     Indication: BIPOLAR DISORDER
     Dosage: DOUBLE-BLINDED STUDY DRUG OF TREATMENT PERIOD II (TRANSITION PERIOD)
     Route: 048
     Dates: start: 20131001, end: 20131028
  9. QUETIAPINE FUMARATE. [Suspect]
     Active Substance: QUETIAPINE FUMARATE
     Indication: BIPOLAR DISORDER
     Dosage: DOUBLE-BLINDED STUDY DRUG OF TREATMENT PERIOD II (DOSE ADJUSTMENT PERIOD)
     Route: 048
     Dates: start: 20131029, end: 20131030
  10. QUETIAPINE FUMARATE. [Suspect]
     Active Substance: QUETIAPINE FUMARATE
     Indication: BIPOLAR DISORDER
     Dosage: THE DOSE OF THE STUDY DRUG OF TREATMENT PERIOD II WAS INCREASED
     Route: 048
     Dates: start: 20131126, end: 20140731
  11. AKIRIDEN [Concomitant]
     Active Substance: BIPERIDEN
     Dates: start: 20140513
  12. LORAZEPAM. [Suspect]
     Active Substance: LORAZEPAM
     Indication: BIPOLAR I DISORDER
     Route: 048
     Dates: start: 20140415
  13. NEXIUM [Concomitant]
     Active Substance: ESOMEPRAZOLE MAGNESIUM
     Route: 048
     Dates: start: 20120724
  14. GASMOTIN [Concomitant]
     Active Substance: MOSAPRIDE CITRATE
     Dates: start: 20140225

REACTIONS (3)
  - Suicidal behaviour [Recovered/Resolved]
  - Bipolar disorder [Unknown]
  - Drug ineffective [Unknown]

NARRATIVE: CASE EVENT DATE: 20140620
